FAERS Safety Report 6093762-1 (Version None)
Quarter: 2009Q1

REPORT INFORMATION
  Report Type: 
  Country: None (occurrence: None)
  Receive Date: 20090226
  Receipt Date: 20090216
  Transmission Date: 20090719
  Serious: Yes (Hospitalization)
  Sender: FDA-Public Use
  Company Number: BR-KINGPHARMUSA00001-K200900153

PATIENT
  Age: 33 Year
  Sex: Female

DRUGS (1)
  1. SEPTRA [Suspect]
     Indication: URINARY TRACT INFECTION
     Dosage: UNK

REACTIONS (14)
  - ANOREXIA [None]
  - CHOLESTASIS [None]
  - CHROMATURIA [None]
  - FATIGUE [None]
  - HYPOALBUMINAEMIA [None]
  - JAUNDICE [None]
  - MALAISE [None]
  - NAUSEA [None]
  - NORMOCHROMIC NORMOCYTIC ANAEMIA [None]
  - PRURIGO [None]
  - PRURITUS [None]
  - PYREXIA [None]
  - VOMITING [None]
  - WEIGHT DECREASED [None]
